FAERS Safety Report 12194031 (Version 1)
Quarter: 2016Q1

REPORT INFORMATION
  Report Type: Spontaneous
  Country: US (occurrence: None)
  Receive Date: 20160318
  Receipt Date: 20160318
  Transmission Date: 20160526
  Serious: Yes (Other)
  Sender: FDA-Public Use
  Company Number: None

PATIENT
  Age: 57 Year
  Sex: Female
  Weight: 140.16 kg

DRUGS (2)
  1. FLORASTOR (PROBIOTIC) [Concomitant]
  2. CIPROFLOXCIN 500MG [Suspect]
     Active Substance: CIPROFLOXACIN
     Indication: PNEUMONIA
     Dosage: 1-500 MG TABLET TWICE DAILY
     Route: 048
     Dates: start: 20160209, end: 20160212

REACTIONS (12)
  - Toxicity to various agents [None]
  - Stomatitis [None]
  - Anal pruritus [None]
  - Injection site pain [None]
  - Fatigue [None]
  - Hypogeusia [None]
  - Glossitis [None]
  - Dyspepsia [None]
  - Pruritus [None]
  - Injection site pruritus [None]
  - Suicidal ideation [None]
  - Food intolerance [None]

NARRATIVE: CASE EVENT DATE: 20160205
